FAERS Safety Report 14668353 (Version 1)
Quarter: 2018Q1

REPORT INFORMATION
  Report Type: Spontaneous
  Country: NL (occurrence: NL)
  Receive Date: 20180322
  Receipt Date: 20180322
  Transmission Date: 20180509
  Serious: Yes (Death)
  Sender: FDA-Public Use
  Company Number: NL-AUROBINDO-AUR-APL-2018-015196

PATIENT
  Age: 69 Year
  Sex: Male

DRUGS (10)
  1. DEXAMETHASON                       /00016001/ [Concomitant]
     Active Substance: DEXAMETHASONE
     Dosage: 2 DD 4 MG, 12 HOUR
     Dates: start: 20170729
  2. AMOXICILLIN POWDER FOR SOLUTION FOR INJECTION OR INFUSION [Suspect]
     Active Substance: AMOXICILLIN
     Indication: MAXILLOFACIAL OPERATION
     Dosage: 4DD 1200MG,6 HOUR
     Route: 065
     Dates: start: 20170728, end: 20170731
  3. DOXYCYCLINE. [Concomitant]
     Active Substance: DOXYCYCLINE
     Indication: PRODUCT USED FOR UNKNOWN INDICATION
     Dosage: 1 DD 1
     Route: 065
     Dates: start: 20170628, end: 20170728
  4. IBUPROFEN. [Concomitant]
     Active Substance: IBUPROFEN
     Indication: PRODUCT USED FOR UNKNOWN INDICATION
     Dosage: 3 DD 1, 8 HOUR
     Route: 065
     Dates: start: 20170628, end: 20170728
  5. DEXAMETHASON                       /00016001/ [Concomitant]
     Active Substance: DEXAMETHASONE
     Indication: PRODUCT USED FOR UNKNOWN INDICATION
     Dosage: 2 DD 8MG, 12 HOUR
     Route: 065
     Dates: start: 20170728
  6. PARACETAMOL [Concomitant]
     Active Substance: ACETAMINOPHEN
     Indication: PRODUCT USED FOR UNKNOWN INDICATION
     Dosage: 4 DD 1
     Route: 065
     Dates: start: 20170728
  7. CLINDAMYCINE-300 [Concomitant]
     Indication: PRODUCT USED FOR UNKNOWN INDICATION
     Dosage: 4 DD 1
     Route: 065
     Dates: start: 20170712, end: 20170728
  8. DICLOFENAC [Concomitant]
     Active Substance: DICLOFENAC
     Indication: PRODUCT USED FOR UNKNOWN INDICATION
     Dosage: 2DD1 Z.N
     Route: 065
     Dates: start: 20170730
  9. ESOMEPRAZOL                        /01479301/ [Concomitant]
     Active Substance: ESOMEPRAZOLE
     Indication: PRODUCT USED FOR UNKNOWN INDICATION
     Dosage: 1DD1
     Route: 065
     Dates: start: 20170728
  10. NADROPARINE [Concomitant]
     Active Substance: NADROPARIN
     Indication: PRODUCT USED FOR UNKNOWN INDICATION
     Dosage: 1 DD
     Route: 065
     Dates: start: 20170728

REACTIONS (2)
  - Pseudomembranous colitis [Fatal]
  - Septic shock [Fatal]

NARRATIVE: CASE EVENT DATE: 20170801
